FAERS Safety Report 7437340-8 (Version None)
Quarter: 2011Q2

REPORT INFORMATION
  Report Type: 
  Country: None (occurrence: None)
  Receive Date: 20110426
  Receipt Date: 20110413
  Transmission Date: 20111010
  Serious: Yes (Hospitalization)
  Sender: FDA-Public Use
  Company Number: PHHY2011ZA31224

PATIENT
  Sex: Male
  Weight: 87 kg

DRUGS (2)
  1. GLEEVEC [Suspect]
     Indication: GASTROINTESTINAL STROMAL TUMOUR
     Dosage: 400 MG, UNK
     Dates: start: 20110330
  2. ANALGESICS [Concomitant]

REACTIONS (6)
  - ABDOMINAL PAIN [None]
  - HEPATIC ATROPHY [None]
  - HEPATIC FUNCTION ABNORMAL [None]
  - HAEMORRHAGIC ASCITES [None]
  - ABDOMINAL INJURY [None]
  - HEPATIC CIRRHOSIS [None]
